FAERS Safety Report 16649791 (Version 1)
Quarter: 2019Q3

REPORT INFORMATION
  Report Type: Spontaneous
  Country: DK (occurrence: DK)
  Receive Date: 20190730
  Receipt Date: 20190730
  Transmission Date: 20191004
  Serious: Yes (Life-Threatening)
  Sender: FDA-Public Use
  Company Number: DK-B.I. PHARMACEUTICALS,INC./RIDGEFIELD-2019-12-002413

PATIENT
  Age: 70 Year
  Sex: Female

DRUGS (5)
  1. JARDIANCE [Suspect]
     Active Substance: EMPAGLIFLOZIN
     Indication: DIABETES MELLITUS
     Dosage: STRENGTH: 10 MG
     Route: 048
     Dates: start: 20190529, end: 20190602
  2. MORPHINE [Concomitant]
     Active Substance: MORPHINE
     Indication: PAIN
     Dosage: STRENGTH: 10 MG DOSE: 1 TABLET AS REQUIRED, MAX. 4 TIMES DAILY
     Route: 048
     Dates: start: 2018
  3. KEYTRUDA [Suspect]
     Active Substance: PEMBROLIZUMAB
     Indication: SMALL CELL LUNG CANCER
     Dosage: STRENGTH: 150MG IV. 5 SERIES IN TOTAL. DOSAGE FORM: POWDER FOR CONCENTRATE FOR SOLUTION FOR INFUSION
     Route: 042
     Dates: start: 2018, end: 20190620
  4. METFORMIN [Concomitant]
     Active Substance: METFORMIN HYDROCHLORIDE
     Indication: DIABETES MELLITUS
     Dosage: STRENGTH: VARIES ?DOSE: VARIES
     Route: 048
     Dates: start: 201905
  5. OZEMPIC [Concomitant]
     Active Substance: SEMAGLUTIDE
     Indication: DIABETES MELLITUS
     Dosage: STRENGTH: 0.5MG AND 0.25MG, DOSE ONCE WEEKLY?DOSAGE FORM: SOLUTION FOR INJECTION IN PRE-FILLED PEN
     Route: 065
     Dates: start: 201905, end: 20190602

REACTIONS (4)
  - Diabetes mellitus [Unknown]
  - Ketoacidosis [Recovered/Resolved]
  - Glycosylated haemoglobin increased [Recovered/Resolved]
  - Blood glucose increased [Recovered/Resolved]

NARRATIVE: CASE EVENT DATE: 20190602
